FAERS Safety Report 8560411-X (Version None)
Quarter: 2012Q3

REPORT INFORMATION
  Report Type: 
  Country: None (occurrence: None)
  Receive Date: 20120802
  Receipt Date: 20120724
  Transmission Date: 20120928
  Serious: Yes (Life-Threatening, Hospitalization)
  Sender: FDA-Public Use
  Company Number: JP-JNJFOC-20091005602

PATIENT
  Age: 57 Year
  Sex: Female

DRUGS (17)
  1. FAMOTIDINE [Concomitant]
     Indication: PROPHYLAXIS
     Route: 048
     Dates: start: 20091014, end: 20091014
  2. LOXOPROFEN SODIUM [Concomitant]
     Route: 048
  3. ACETAMINOPHEN [Concomitant]
     Indication: PROPHYLAXIS
     Route: 048
     Dates: start: 20091014, end: 20091014
  4. REMICADE [Suspect]
     Route: 042
  5. SOLU-MEDROL [Concomitant]
     Indication: ANAPHYLACTIC REACTION
     Route: 065
     Dates: start: 20091014
  6. BUCILLAMINE [Concomitant]
     Route: 048
  7. POLARAMINE [Concomitant]
     Indication: ANAPHYLACTIC REACTION
     Route: 065
     Dates: start: 20091014
  8. ROXATIDINE ACETATE HCL [Concomitant]
     Indication: ANAPHYLACTIC REACTION
     Route: 065
     Dates: start: 20091014
  9. ALLEGRA [Concomitant]
     Indication: PROPHYLAXIS
     Route: 048
     Dates: start: 20091014, end: 20091014
  10. SOLU-CORTEF [Concomitant]
     Indication: ANAPHYLACTIC REACTION
     Route: 065
     Dates: start: 20091014
  11. REMICADE [Suspect]
     Indication: RHEUMATOID ARTHRITIS
     Dosage: SECOND DOSE
     Route: 042
  12. REMICADE [Suspect]
     Dosage: FOURTH DOSE
     Route: 042
     Dates: start: 20091014
  13. REMICADE [Suspect]
     Dosage: THIRD DOSE
     Route: 042
  14. LACTEC [Concomitant]
     Indication: ANAPHYLACTIC REACTION
     Route: 041
     Dates: start: 20091014
  15. BOSMIN [Concomitant]
     Indication: ANAPHYLACTIC REACTION
     Route: 065
     Dates: start: 20091014
  16. RHEUMATREX [Concomitant]
     Indication: RHEUMATOID ARTHRITIS
     Route: 048
  17. PREDNISOLONE [Concomitant]
     Route: 048

REACTIONS (5)
  - ANAPHYLACTIC REACTION [None]
  - INFUSION RELATED REACTION [None]
  - ATRIAL FIBRILLATION [None]
  - CEREBRAL ARTERY EMBOLISM [None]
  - RESPIRATORY ARREST [None]
